FAERS Safety Report 12287136 (Version 2)
Quarter: 2016Q2

REPORT INFORMATION
  Report Type: Spontaneous
  Country: US (occurrence: US)
  Receive Date: 20160420
  Receipt Date: 20160420
  Transmission Date: 20160815
  Serious: No
  Sender: FDA-Public Use
  Company Number: US-TEVA-646496ACC

PATIENT
  Age: 35 Year
  Sex: Female
  Weight: 61.29 kg

DRUGS (1)
  1. PARAGARD T 380A [Suspect]
     Active Substance: COPPER
     Indication: CONTRACEPTION
     Dates: start: 20131204, end: 20151230

REACTIONS (5)
  - Vaginal haemorrhage [Recovered/Resolved]
  - Exposure during breast feeding [Unknown]
  - Amenorrhoea [Recovered/Resolved]
  - Unintentional medical device removal [Unknown]
  - Device breakage [Unknown]

NARRATIVE: CASE EVENT DATE: 2014
